FAERS Safety Report 10542460 (Version 1)
Quarter: 2014Q4

REPORT INFORMATION
  Report Type: Report from Study
  Country: FI (occurrence: FI)
  Receive Date: 20141027
  Receipt Date: 20141027
  Transmission Date: 20150529
  Serious: Yes (Life-Threatening, Hospitalization)
  Sender: FDA-Public Use
  Company Number: FI-ROCHE-1477758

PATIENT
  Age: 68 Year
  Sex: Female

DRUGS (12)
  1. LOMUSTINE. [Suspect]
     Active Substance: LOMUSTINE
     Indication: METASTATIC MALIGNANT MELANOMA
     Dosage: DAY 1 OF EACH 28 DAY CYCLE, AS PER PROTOCOL
     Route: 048
     Dates: start: 20140918
  2. PANADOL FORTE [Concomitant]
     Dosage: 1-3 TIMES A DAY
     Route: 048
  3. DIURAMIN MITE [Suspect]
     Active Substance: AMILORIDE HYDROCHLORIDE\HYDROCHLOROTHIAZIDE
     Indication: PRODUCT USED FOR UNKNOWN INDICATION
     Dosage: DOSE: 2.5/25MG
     Route: 048
  4. BISOPROLOL [Concomitant]
     Active Substance: BISOPROLOL
     Route: 048
  5. TEMOZOLOMIDE. [Suspect]
     Active Substance: TEMOZOLOMIDE
     Indication: METASTATIC MALIGNANT MELANOMA
     Dosage: DAYS 1-5 OF EACH 28 DAY CYCLE, AS PER PROTOCOL
     Route: 048
     Dates: start: 20140918, end: 20140922
  6. LINATIL [Suspect]
     Active Substance: ENALAPRIL MALEATE
     Indication: PRODUCT USED FOR UNKNOWN INDICATION
     Route: 048
  7. THYROXIN [Concomitant]
     Active Substance: LEVOTHYROXINE
     Dosage: 1-2 DAILY
     Route: 048
  8. OXYCONTIN [Concomitant]
     Active Substance: OXYCODONE HYDROCHLORIDE
     Route: 048
  9. PENTACARINAT [Concomitant]
     Active Substance: PENTAMIDINE ISETHIONATE
     Route: 055
  10. PROGYNOVA [Concomitant]
     Active Substance: ESTRADIOL VALERATE
     Route: 048
  11. INTERFERON ALFA-2A [Suspect]
     Active Substance: INTERFERON ALFA-2A
     Indication: METASTATIC MALIGNANT MELANOMA
     Dosage: AS PER PROTOCOL
     Route: 058
     Dates: start: 20140918, end: 20141016
  12. VINCRISTINE [Suspect]
     Active Substance: VINCRISTINE
     Indication: METASTATIC MALIGNANT MELANOMA
     Route: 042
     Dates: start: 20140918

REACTIONS (1)
  - Hypercalcaemia [Unknown]

NARRATIVE: CASE EVENT DATE: 20141016
